FAERS Safety Report 10949745 (Version 7)
Quarter: 2015Q4

REPORT INFORMATION
  Report Type: Spontaneous
  Country: US (occurrence: US)
  Receive Date: 20150324
  Receipt Date: 20151001
  Transmission Date: 20160304
  Serious: Yes (Life-Threatening, Hospitalization)
  Sender: FDA-Public Use
  Company Number: US-JNJFOC-20150313932

PATIENT
  Age: 81 Year
  Sex: Female

DRUGS (4)
  1. TOPROL XL [Concomitant]
     Active Substance: METOPROLOL SUCCINATE
     Indication: ATRIAL FLUTTER
     Route: 065
  2. XARELTO [Suspect]
     Active Substance: RIVAROXABAN
     Indication: ATRIAL FLUTTER
     Route: 048
     Dates: start: 20150130, end: 20150313
  3. ALLOPURINOL. [Concomitant]
     Active Substance: ALLOPURINOL
     Indication: LYMPHOMA
     Route: 065
  4. ALLOPURINOL. [Concomitant]
     Active Substance: ALLOPURINOL
     Indication: GOUT
     Route: 065

REACTIONS (4)
  - Pericardial effusion [Recovered/Resolved]
  - Haemoglobin decreased [Not Recovered/Not Resolved]
  - Cardiac tamponade [Recovered/Resolved]
  - Malaise [Recovered/Resolved]

NARRATIVE: CASE EVENT DATE: 201502
